FAERS Safety Report 8919360 (Version 1)
Quarter: 2012Q4

REPORT INFORMATION
  Report Type: 
  Country: US (occurrence: US)
  Receive Date: 20121121
  Receipt Date: 20121121
  Transmission Date: 20130627
  Serious: No
  Sender: FDA-Public Use
  Company Number: US-BAYER-2012-121334

PATIENT
  Age: 36 Year
  Sex: Female

DRUGS (1)
  1. MIRENA [Suspect]
     Indication: CONTRACEPTION
     Dosage: 20 mcg/24hr, CONT
     Route: 015
     Dates: start: 201203, end: 201205

REACTIONS (6)
  - Abdominal pain lower [None]
  - Abdominal distension [None]
  - Fatigue [None]
  - Headache [None]
  - Nausea [None]
  - Myalgia [None]
